FAERS Safety Report 6883625-3 (Version None)
Quarter: 2010Q3

REPORT INFORMATION
  Report Type: 
  Country: None (occurrence: None)
  Receive Date: 20100729
  Receipt Date: 20100716
  Transmission Date: 20110219
  Serious: Yes (Hospitalization)
  Sender: FDA-Public Use
  Company Number: A0798953A

PATIENT
  Age: 54 Year
  Sex: Female

DRUGS (4)
  1. AVANDIA [Suspect]
     Dosage: 4MG TWICE PER DAY
     Route: 048
  2. GLUCOPHAGE [Concomitant]
  3. LOTENSIN [Concomitant]
  4. CLONIDINE [Concomitant]

REACTIONS (2)
  - CARDIAC FAILURE CONGESTIVE [None]
  - ISCHAEMIC STROKE [None]
